FAERS Safety Report 6607761-1 (Version None)
Quarter: 2010Q1

REPORT INFORMATION
  Report Type: 
  Country: None (occurrence: None)
  Receive Date: 20100212
  Receipt Date: 20091228
  Transmission Date: 20100710
  Serious: No
  Sender: FDA-Public Use
  Company Number: 1000010970

PATIENT
  Age: 49 Year
  Sex: Female

DRUGS (14)
  1. SAVELLA [Suspect]
     Indication: PAIN
     Dosage: 12.5 MG (12.5 MG, 1 IN 1 D), ORAL; 25 MG (12.5 MG, 2 IN 1 D), ORAL; 50 MG (25 MG, 2 IN 1 D), ORAL;
     Route: 048
     Dates: start: 20091222, end: 20091223
  2. SAVELLA [Suspect]
     Indication: PAIN
     Dosage: 12.5 MG (12.5 MG, 1 IN 1 D), ORAL; 25 MG (12.5 MG, 2 IN 1 D), ORAL; 50 MG (25 MG, 2 IN 1 D), ORAL;
     Route: 048
     Dates: start: 20091224, end: 20091227
  3. SAVELLA [Suspect]
     Indication: PAIN
     Dosage: 12.5 MG (12.5 MG, 1 IN 1 D), ORAL; 25 MG (12.5 MG, 2 IN 1 D), ORAL; 50 MG (25 MG, 2 IN 1 D), ORAL;
     Route: 048
     Dates: start: 20091228
  4. DICYCLOMINE [Concomitant]
  5. TRAZODONE HCL [Concomitant]
  6. TYLENOL-500 [Concomitant]
  7. CALCIUM [Concomitant]
  8. L-LYSINE [Concomitant]
  9. VITAMIN B-12 [Concomitant]
  10. BIOTIN [Concomitant]
  11. VITAMIN E [Concomitant]
  12. SELENIUM [Concomitant]
  13. IRON [Concomitant]
  14. FIBER SUPPLEMENT [Concomitant]

REACTIONS (6)
  - BACK PAIN [None]
  - HYPOAESTHESIA FACIAL [None]
  - MUSCULOSKELETAL PAIN [None]
  - MUSCULOSKELETAL STIFFNESS [None]
  - NECK PAIN [None]
  - PAIN IN JAW [None]
